FAERS Safety Report 4753186-3 (Version None)
Quarter: 2005Q3

REPORT INFORMATION
  Report Type: 
  Country: None (occurrence: None)
  Receive Date: 20050824
  Receipt Date: 20050810
  Transmission Date: 20060218
  Serious: Yes (Other)
  Sender: FDA-Public Use
  Company Number: 195974

PATIENT
  Age: 48 Year
  Sex: Female
  Weight: 68.0396 kg

DRUGS (9)
  1. AVONEX [Suspect]
     Indication: MULTIPLE SCLEROSIS
     Dosage: 30 UG; QW; IM
     Route: 030
     Dates: start: 20010101, end: 20030901
  2. AVONEX [Suspect]
     Indication: MULTIPLE SCLEROSIS
     Dosage: 30 UG; QW; IM
     Route: 030
     Dates: start: 20030901
  3. ALTACE [Concomitant]
  4. NEXIUM [Concomitant]
  5. NIASPAN [Concomitant]
  6. LIPITOR [Concomitant]
  7. ALPRAZOLAM [Concomitant]
  8. TOPROL-XL [Concomitant]
  9. ASPIRIN [Concomitant]

REACTIONS (2)
  - BREAST CANCER FEMALE [None]
  - INFLUENZA LIKE ILLNESS [None]
